FAERS Safety Report 8090803-7 (Version None)
Quarter: 2012Q1

REPORT INFORMATION
  Report Type: 
  Country: None (occurrence: None)
  Receive Date: 20120125
  Receipt Date: 20120112
  Transmission Date: 20120608
  Serious: Yes (Hospitalization, Other)
  Sender: FDA-Public Use
  Company Number: NSR_00465_2012

PATIENT
  Age: 34 Year
  Sex: Female
  Weight: 65 kg

DRUGS (3)
  1. VENLAFAXINE [Suspect]
     Indication: PRODUCT USED FOR UNKNOWN INDICATION
     Dosage: (DF [COULD HAVE INGESTED A MAXIMAL DOSE OF 3.75 G])
  2. VENLAFAXINE [Suspect]
     Indication: PRODUCT USED FOR UNKNOWN INDICATION
     Dosage: (DF [COULD HAVE INGESTED A MAXIMAL DOSE OF 7.5 G])
  3. ACETAMINOPHEN [Suspect]
     Indication: PRODUCT USED FOR UNKNOWN INDICATION
     Dosage: (DF [COULD HAVE INGESTED A MAXIMAL DOSE OF 7.5 G])

REACTIONS (19)
  - HYPOTENSION [None]
  - BLOOD LACTIC ACID INCREASED [None]
  - PULMONARY CONGESTION [None]
  - RENAL FAILURE ACUTE [None]
  - UNRESPONSIVE TO STIMULI [None]
  - MYOCARDIAL ISCHAEMIA [None]
  - HEART RATE INCREASED [None]
  - CONTINUOUS HAEMODIAFILTRATION [None]
  - OLIGURIA [None]
  - VENTRICULAR DYSFUNCTION [None]
  - PULMONARY OEDEMA [None]
  - PNEUMONIA [None]
  - CONVULSION [None]
  - TOXICITY TO VARIOUS AGENTS [None]
  - SEROTONIN SYNDROME [None]
  - CARDIOTOXICITY [None]
  - MULTIPLE DRUG OVERDOSE [None]
  - RHABDOMYOLYSIS [None]
  - CARDIAC FAILURE ACUTE [None]
